FAERS Safety Report 15484480 (Version 1)
Quarter: 2018Q4

REPORT INFORMATION
  Report Type: Spontaneous
  Country: FR (occurrence: FR)
  Receive Date: 20181010
  Receipt Date: 20181010
  Transmission Date: 20190205
  Serious: Yes (Hospitalization)
  Sender: FDA-Public Use
  Company Number: FR-ANIPHARMA-2018-FR-000148

PATIENT
  Age: 90 Year
  Sex: Female
  Weight: 33 kg

DRUGS (6)
  1. DOLIPRANE [Concomitant]
     Active Substance: ACETAMINOPHEN
     Route: 048
  2. KARDEGIC [Concomitant]
     Active Substance: ASPIRIN DL-LYSINE
     Route: 048
  3. CANDESARTAN CILEXETIL. [Suspect]
     Active Substance: CANDESARTAN CILEXETIL
     Indication: HYPERTENSION
     Dosage: 4MG DAILY
     Route: 048
     Dates: start: 201801, end: 20180726
  4. FORLAX [Concomitant]
     Active Substance: POLYETHYLENE GLYCOL 4000
     Route: 048
  5. BISOCE [Concomitant]
     Active Substance: BISOPROLOL
     Dosage: 2.5MG DAILY
     Route: 048
     Dates: end: 20180726
  6. LASILIX [Suspect]
     Active Substance: FUROSEMIDE
     Dosage: 10MG DAILY
     Route: 048
     Dates: start: 20180407, end: 20180726

REACTIONS (3)
  - Dehydration [Recovered/Resolved]
  - Acute kidney injury [Recovered/Resolved]
  - Hypotension [Recovered/Resolved]

NARRATIVE: CASE EVENT DATE: 20180726
